FAERS Safety Report 25479972 (Version 2)
Quarter: 2025Q3

REPORT INFORMATION
  Report Type: Spontaneous
  Country: GB (occurrence: GB)
  Receive Date: 20250625
  Receipt Date: 20250908
  Transmission Date: 20251020
  Serious: Yes (Hospitalization, Other)
  Sender: DR REDDYS
  Company Number: None

PATIENT
  Sex: Male

DRUGS (4)
  1. OLANZAPINE [Suspect]
     Active Substance: OLANZAPINE
     Indication: Product used for unknown indication
  2. OLANZAPINE [Suspect]
     Active Substance: OLANZAPINE
  3. CLOZARIL [Suspect]
     Active Substance: CLOZAPINE
     Indication: Schizophrenia
     Dosage: UNK, BID (200 MG MORNING AND 400 EVENING DOSE)
     Route: 048
     Dates: start: 20190517
  4. CLOZARIL [Suspect]
     Active Substance: CLOZAPINE
     Dosage: UNK, TID (200 MG AM AND 400 PM DOSE, AFTER TAKING BOTH DOSES TOOK 600 MG EXTRA)
     Route: 048
     Dates: start: 20250514

REACTIONS (2)
  - Overdose [Unknown]
  - Malaise [Unknown]

NARRATIVE: CASE EVENT DATE: 20250514
